FAERS Safety Report 24561824 (Version 2)
Quarter: 2024Q4

REPORT INFORMATION
  Report Type: Spontaneous
  Country: US (occurrence: US)
  Receive Date: 20241029
  Receipt Date: 20241106
  Transmission Date: 20250114
  Serious: No
  Sender: AMGEN
  Company Number: US-AMGEN-USASP2024212734

PATIENT
  Sex: Male

DRUGS (5)
  1. OTEZLA [Suspect]
     Active Substance: APREMILAST
     Indication: Psoriasis
     Dosage: 30 MILLIGRAM
     Route: 065
  2. LISINOPRIL [Concomitant]
     Active Substance: LISINOPRIL
  3. ZETIA [Concomitant]
     Active Substance: EZETIMIBE
  4. TYLENOL [Concomitant]
     Active Substance: ACETAMINOPHEN
  5. CETIRIZINE HCL [Concomitant]
     Active Substance: CETIRIZINE HYDROCHLORIDE

REACTIONS (2)
  - Abdominal discomfort [Unknown]
  - Adverse drug reaction [Unknown]
